FAERS Safety Report 7399471-0 (Version None)
Quarter: 2011Q2

REPORT INFORMATION
  Report Type: 
  Country: None (occurrence: None)
  Receive Date: 20110407
  Receipt Date: 20110404
  Transmission Date: 20111010
  Serious: Yes (Life-Threatening, Other)
  Sender: FDA-Public Use
  Company Number: PHHY2011BR27594

PATIENT
  Sex: Female
  Weight: 68 kg

DRUGS (3)
  1. EXELON [Suspect]
     Indication: DEMENTIA ALZHEIMER'S TYPE
     Dosage: 1 DF, QD
     Dates: start: 20110101
  2. EXELON [Suspect]
     Dosage: 3 MG, DAILY
     Route: 048
     Dates: start: 20110201, end: 20110301
  3. SYNTHROID [Concomitant]
     Indication: THYROID DISORDER
     Dosage: 1 DF, QD

REACTIONS (9)
  - WEIGHT DECREASED [None]
  - DECREASED APPETITE [None]
  - CRYING [None]
  - CHILLS [None]
  - VOMITING [None]
  - MALAISE [None]
  - FEELING ABNORMAL [None]
  - DEPRESSION [None]
  - FATIGUE [None]
